FAERS Safety Report 23269501 (Version 1)
Quarter: 2023Q4

REPORT INFORMATION
  Report Type: Spontaneous
  Country: US (occurrence: US)
  Receive Date: 20231207
  Receipt Date: 20231207
  Transmission Date: 20240110
  Serious: Yes (Other)
  Sender: FDA-Public Use
  Company Number: US-BIOVITRUM-2023-US-013545

PATIENT
  Age: 76 Year
  Sex: Male

DRUGS (2)
  1. KINERET [Suspect]
     Active Substance: ANAKINRA
     Indication: Monoclonal gammopathy
     Dosage: 100 MG DAILY
     Route: 058
     Dates: start: 20220603
  2. KINERET [Suspect]
     Active Substance: ANAKINRA
     Indication: Schnitzler^s syndrome

REACTIONS (6)
  - Neuropathy peripheral [Unknown]
  - Body temperature fluctuation [Unknown]
  - Dizziness [Unknown]
  - COVID-19 [Unknown]
  - Glomerular filtration rate decreased [Unknown]
  - Cystatin C abnormal [Unknown]

NARRATIVE: CASE EVENT DATE: 20230501
